FAERS Safety Report 19895185 (Version 1)
Quarter: 2021Q3

REPORT INFORMATION
  Report Type: Spontaneous
  Country: US (occurrence: US)
  Receive Date: 20210929
  Receipt Date: 20210929
  Transmission Date: 20211014
  Serious: No
  Sender: FDA-Public Use
  Company Number: None

PATIENT
  Age: 46 Year
  Sex: Male
  Weight: 115.08 kg

DRUGS (1)
  1. LISINOPRIL (LISINOPRIL 40MG TAB) [Suspect]
     Active Substance: LISINOPRIL
     Indication: PRODUCT USED FOR UNKNOWN INDICATION
     Route: 048
     Dates: start: 20171208, end: 20180502

REACTIONS (2)
  - Angioedema [None]
  - Dyspnoea [None]

NARRATIVE: CASE EVENT DATE: 20210502
